FAERS Safety Report 7370450 (Version 20)
Quarter: 2015Q2

REPORT INFORMATION
  Report Type: Report from Study
  Country: CA (occurrence: CA)
  Receive Date: 20100429
  Receipt Date: 20150429
  Transmission Date: 20150821
  Serious: Yes (Hospitalization, Other)
  Sender: FDA-Public Use
  Company Number: PHHY2010CA25403

PATIENT
  Age: 67 Year
  Sex: Male

DRUGS (2)
  1. SANDOSTATIN LAR DEPOT [Suspect]
     Active Substance: OCTREOTIDE ACETATE
     Indication: PANCREATIC NEUROENDOCRINE TUMOUR
     Dosage: 30 MG, EVERY 4 WEEKS
     Route: 030
     Dates: start: 20081102
  2. AFINITOR [Suspect]
     Active Substance: EVEROLIMUS
     Indication: PRODUCT USED FOR UNKNOWN INDICATION
     Route: 065

REACTIONS (23)
  - Malignant neoplasm progression [Unknown]
  - Eructation [Unknown]
  - Abdominal pain [Recovering/Resolving]
  - Mass [Unknown]
  - Metastases to liver [Unknown]
  - Nausea [Recovering/Resolving]
  - Vomiting [Recovering/Resolving]
  - Heart rate increased [Unknown]
  - Metastases to abdominal cavity [Unknown]
  - Joint effusion [Recovered/Resolved]
  - Dyspepsia [Unknown]
  - Decreased appetite [Unknown]
  - Gastroenteritis viral [Unknown]
  - Blood glucose increased [Unknown]
  - Gastrointestinal inflammation [Recovered/Resolved]
  - Wound [Unknown]
  - Heart rate decreased [Unknown]
  - Colon neoplasm [Unknown]
  - Colonoscopy abnormal [Unknown]
  - Asthenia [Unknown]
  - Palpitations [Unknown]
  - Haematochezia [Unknown]
  - Abdominal discomfort [Unknown]

NARRATIVE: CASE EVENT DATE: 20130625
